FAERS Safety Report 13737632 (Version 1)
Quarter: 2017Q3

REPORT INFORMATION
  Report Type: Spontaneous
  Country: US (occurrence: US)
  Receive Date: 20170710
  Receipt Date: 20170710
  Transmission Date: 20171127
  Serious: No
  Sender: FDA-Public Use
  Company Number: US-SAOL THERAPEUTICS-2016SAO00814

PATIENT
  Age: 52 Year
  Sex: Male

DRUGS (2)
  1. BACLOFEN. [Suspect]
     Active Substance: BACLOFEN
     Indication: STIFF PERSON SYNDROME
     Dosage: 755.4 ?G, \DAY
     Route: 037
     Dates: start: 20161004
  2. BACLOFEN. [Suspect]
     Active Substance: BACLOFEN
     Indication: MUSCLE SPASTICITY
     Dosage: 708.9 ?G, \DAY
     Route: 037
     Dates: start: 20160928, end: 20161004

REACTIONS (5)
  - Musculoskeletal stiffness [Recovered/Resolved]
  - Medical device site bruise [Unknown]
  - Drug intolerance [Unknown]
  - Device connection issue [Recovered/Resolved]
  - Pain [Recovered/Resolved]

NARRATIVE: CASE EVENT DATE: 20100922
